FAERS Safety Report 5693035-2 (Version None)
Quarter: 2008Q2

REPORT INFORMATION
  Report Type: 
  Country: None (occurrence: None)
  Receive Date: 20080401
  Receipt Date: 20080401
  Transmission Date: 20081010
  Serious: Yes (Death)
  Sender: FDA-Public Use
  Company Number: None

PATIENT
  Age: 21 Year
  Sex: Male
  Weight: 58.9676 kg

DRUGS (1)
  1. SINGULAIR [Suspect]
     Indication: ASTHMA
     Dosage: } 3 TIMES/DAY INHAL
     Route: 055

REACTIONS (4)
  - ANGER [None]
  - COMPLETED SUICIDE [None]
  - HEADACHE [None]
  - MENTAL DISORDER [None]
